FAERS Safety Report 6501571-1 (Version None)
Quarter: 2009Q4

REPORT INFORMATION
  Report Type: 
  Country: None (occurrence: None)
  Receive Date: 20091215
  Receipt Date: 20091215
  Transmission Date: 20100525
  Serious: Yes (Other)
  Sender: FDA-Public Use
  Company Number: None

PATIENT
  Age: 63 Year
  Sex: Female
  Weight: 81.6475 kg

DRUGS (1)
  1. LEVAQUIN [Suspect]
     Indication: SINUSITIS
     Dosage: 1 DAILY PO
     Route: 048
     Dates: start: 20091209, end: 20091209

REACTIONS (5)
  - DIARRHOEA [None]
  - HEAD TITUBATION [None]
  - INSOMNIA [None]
  - RESTLESSNESS [None]
  - TREMOR [None]
